FAERS Safety Report 21967186 (Version 6)
Quarter: 2023Q2

REPORT INFORMATION
  Report Type: Report from Study
  Country: CA (occurrence: CA)
  Receive Date: 20230208
  Receipt Date: 20230627
  Transmission Date: 20230721
  Serious: Yes (Other)
  Sender: FDA-Public Use
  Company Number: CA-JNJFOC-20230203554

PATIENT
  Age: 14 Year
  Sex: Female
  Weight: 52 kg

DRUGS (2)
  1. REMICADE [Suspect]
     Active Substance: INFLIXIMAB
     Indication: Crohn^s disease
     Dosage: EXPIRATION DATE :01-SEP-2025?EXPIRY DATE: 01-AUG-2025
     Route: 042
     Dates: start: 20220305, end: 20230621
  2. BENADRYL [Concomitant]
     Active Substance: DIPHENHYDRAMINE HYDROCHLORIDE
     Indication: Premedication
     Dosage: 25-50 MG
     Route: 048

REACTIONS (3)
  - Hypersensitivity [Recovered/Resolved]
  - Drug specific antibody present [Unknown]
  - Treatment failure [Unknown]

NARRATIVE: CASE EVENT DATE: 20230131
